FAERS Safety Report 5739563-2 (Version None)
Quarter: 2008Q2

REPORT INFORMATION
  Report Type: 
  Country: None (occurrence: None)
  Receive Date: 20080515
  Receipt Date: 20080509
  Transmission Date: 20081010
  Serious: Yes (Hospitalization)
  Sender: FDA-Public Use
  Company Number: US-BOEHRINGER INGELHEIM GMBH, GERMANY-2008-BP-06022BP

PATIENT
  Sex: Female
  Weight: 70 kg

DRUGS (5)
  1. WARFARIN SODIUM [Suspect]
     Indication: CEREBROVASCULAR ACCIDENT PROPHYLAXIS
     Route: 048
     Dates: start: 20060914
  2. WARFARIN SODIUM [Suspect]
     Indication: THROMBOSIS PROPHYLAXIS
  3. DULCOLAX [Suspect]
     Indication: CONSTIPATION
     Route: 054
     Dates: start: 20080310, end: 20080313
  4. DULCOLAX [Suspect]
     Route: 054
     Dates: start: 20080320, end: 20080320
  5. DULCOLAX [Suspect]
     Route: 054
     Dates: start: 20080407, end: 20080407

REACTIONS (2)
  - COAGULATION TIME PROLONGED [None]
  - CONSTIPATION [None]
